FAERS Safety Report 9726673 (Version 2)
Quarter: 2014Q1

REPORT INFORMATION
  Report Type: Spontaneous
  Country: CH (occurrence: CH)
  Receive Date: 20131203
  Receipt Date: 20140317
  Transmission Date: 20141002
  Serious: Yes (Hospitalization, Other)
  Sender: FDA-Public Use
  Company Number: CH-BAYER-2013-144732

PATIENT
  Age: 24 Year
  Sex: Female

DRUGS (1)
  1. MIRENA [Suspect]
     Indication: CONTRACEPTION
     Dosage: UNK
     Route: 015
     Dates: start: 20091116, end: 20131004

REACTIONS (3)
  - Endometriosis [Recovering/Resolving]
  - Adnexal torsion [Recovering/Resolving]
  - Abdominal pain lower [Recovering/Resolving]
